FAERS Safety Report 23225489 (Version 1)
Quarter: 2023Q4

REPORT INFORMATION
  Report Type: Spontaneous
  Country: KR (occurrence: KR)
  Receive Date: 20231124
  Receipt Date: 20231124
  Transmission Date: 20240110
  Serious: Yes (Death, Other)
  Sender: FDA-Public Use
  Company Number: KR-SA-2023SA363097

PATIENT
  Age: 48 Year
  Sex: Female

DRUGS (4)
  1. ANTI-THYMOCYTE GLOBULIN (RABBIT) NOS [Suspect]
     Active Substance: LAPINE T-LYMPHOCYTE IMMUNE GLOBULIN
     Indication: Graft versus host disease
  2. METHOTREXATE [Suspect]
     Active Substance: METHOTREXATE
     Indication: Graft versus host disease
  3. MYCOPHENOLATE MOFETIL [Suspect]
     Active Substance: MYCOPHENOLATE MOFETIL
     Indication: Graft versus host disease
  4. TACROLIMUS [Suspect]
     Active Substance: TACROLIMUS
     Indication: Graft versus host disease

REACTIONS (8)
  - Graft versus host disease in liver [Fatal]
  - Graft versus host disease in gastrointestinal tract [Fatal]
  - Septic shock [Unknown]
  - Abdominal distension [Fatal]
  - Nausea [Fatal]
  - Vomiting [Fatal]
  - Diarrhoea [Fatal]
  - Pyrexia [Fatal]
